FAERS Safety Report 7641333-5 (Version None)
Quarter: 2011Q3

REPORT INFORMATION
  Report Type: 
  Country: None (occurrence: None)
  Receive Date: 20110728
  Receipt Date: 20110726
  Transmission Date: 20111222
  Serious: Yes (Hospitalization, Other)
  Sender: FDA-Public Use
  Company Number: US-PFIZER INC-2011170187

PATIENT
  Sex: Female
  Weight: 57 kg

DRUGS (6)
  1. LIPITOR [Suspect]
     Indication: BLOOD CHOLESTEROL ABNORMAL
     Dosage: 20 MG, DAILY
     Route: 048
  2. LIPITOR [Suspect]
     Dosage: UNK
     Route: 048
  3. EFFIENT [Concomitant]
     Indication: ANTICOAGULANT THERAPY
     Dosage: 5 MG, DAILY
     Route: 048
  4. PLAVIX [Suspect]
     Indication: HYPERTENSION
     Dosage: UNK
     Route: 048
     Dates: start: 20100201
  5. LEVOXYL [Concomitant]
     Indication: THYROID DISORDER
     Dosage: 75 UG, DAILY
     Route: 048
  6. ASPIRIN [Concomitant]
     Dosage: 162 MG, 2X/DAY
     Route: 048

REACTIONS (3)
  - CORONARY ARTERIAL STENT INSERTION [None]
  - MALAISE [None]
  - BLOOD PRESSURE INCREASED [None]
